FAERS Safety Report 10362710 (Version 3)
Quarter: 2014Q3

REPORT INFORMATION
  Report Type: Report from Study
  Country: US (occurrence: US)
  Receive Date: 20140805
  Receipt Date: 20140811
  Transmission Date: 20150326
  Serious: Yes (Hospitalization, Other)
  Sender: FDA-Public Use
  Company Number: US-BAYER-2014-108884

PATIENT
  Age: 93 Year
  Sex: Female

DRUGS (2)
  1. NEXAVAR [Suspect]
     Active Substance: SORAFENIB
     Indication: THYROID CANCER
     Dosage: 400 MG, BID
     Route: 048
     Dates: start: 201407
  2. NEXAVAR [Suspect]
     Active Substance: SORAFENIB
     Indication: THYROID CANCER
     Dosage: 400 MG AM, 200 MG PM
     Route: 048
     Dates: start: 20140614, end: 20140718

REACTIONS (9)
  - Blood pressure fluctuation [None]
  - Hospitalisation [None]
  - Asthenia [Recovering/Resolving]
  - Blood sodium decreased [None]
  - Coordination abnormal [None]
  - Dysarthria [None]
  - Diarrhoea [None]
  - Confusional state [None]
  - Gait disturbance [None]
